FAERS Safety Report 8120558-9 (Version None)
Quarter: 2012Q1

REPORT INFORMATION
  Report Type: 
  Country: None (occurrence: None)
  Receive Date: 20120207
  Receipt Date: 20120201
  Transmission Date: 20120608
  Serious: Yes (Other)
  Sender: FDA-Public Use
  Company Number: BR-ROXANE LABORATORIES, INC.-2012-RO-00577RO

PATIENT
  Age: 46 Year
  Sex: Female

DRUGS (3)
  1. PYRIDOSTIGMINE BROMIDE [Suspect]
     Indication: MYASTHENIA GRAVIS
  2. AZATHIOPRINE [Suspect]
     Indication: MYASTHENIA GRAVIS
  3. PREDNISONE [Suspect]
     Indication: MYASTHENIA GRAVIS

REACTIONS (1)
  - MENINGITIS CRYPTOCOCCAL [None]
